FAERS Safety Report 14457260 (Version 3)
Quarter: 2018Q3

REPORT INFORMATION
  Report Type: Report from Study
  Country: US (occurrence: US)
  Receive Date: 20180130
  Receipt Date: 20180905
  Transmission Date: 20181010
  Serious: Yes (Hospitalization, Other)
  Sender: FDA-Public Use
  Company Number: US-JNJFOC-20171134592

PATIENT
  Sex: Male

DRUGS (19)
  1. IRON [Concomitant]
     Active Substance: IRON
  2. BICALUTAMIDE. [Concomitant]
     Active Substance: BICALUTAMIDE
  3. MYRBETRIQ [Concomitant]
     Active Substance: MIRABEGRON
  4. IMBRUVICA [Suspect]
     Active Substance: IBRUTINIB
     Indication: WALDENSTROM^S MACROGLOBULINAEMIA
     Route: 048
     Dates: start: 20161127
  5. RAMIPRIL. [Concomitant]
     Active Substance: RAMIPRIL
  6. LASIX [Concomitant]
     Active Substance: FUROSEMIDE
  7. ALLOPURINOL. [Concomitant]
     Active Substance: ALLOPURINOL
  8. FERROUS SULFATE. [Concomitant]
     Active Substance: FERROUS SULFATE
  9. TAMSULOSIN HYDROCHLORIDE. [Concomitant]
     Active Substance: TAMSULOSIN HYDROCHLORIDE
  10. ZYTIGA [Concomitant]
     Active Substance: ABIRATERONE ACETATE
  11. PREDNISONE. [Concomitant]
     Active Substance: PREDNISONE
  12. IMBRUVICA [Suspect]
     Active Substance: IBRUTINIB
     Indication: WALDENSTROM^S MACROGLOBULINAEMIA
     Route: 048
     Dates: start: 20140222
  13. TRAMADOL. [Concomitant]
     Active Substance: TRAMADOL
  14. TOPROL XL [Concomitant]
     Active Substance: METOPROLOL SUCCINATE
  15. IMBRUVICA [Suspect]
     Active Substance: IBRUTINIB
     Indication: WALDENSTROM^S MACROGLOBULINAEMIA
     Route: 048
     Dates: start: 20160106
  16. IMBRUVICA [Suspect]
     Active Substance: IBRUTINIB
     Indication: WALDENSTROM^S MACROGLOBULINAEMIA
     Route: 048
     Dates: start: 20161122
  17. PROTONIX [Concomitant]
     Active Substance: PANTOPRAZOLE SODIUM
  18. ELIQUIS [Concomitant]
     Active Substance: APIXABAN
  19. SOTALOL. [Concomitant]
     Active Substance: SOTALOL

REACTIONS (3)
  - Prostate cancer metastatic [Recovering/Resolving]
  - Metastases to bone [Unknown]
  - Procedural haemorrhage [Recovered/Resolved]
